FAERS Safety Report 11733221 (Version 1)
Quarter: 2015Q4

REPORT INFORMATION
  Report Type: Spontaneous
  Country: US (occurrence: US)
  Receive Date: 20151110
  Receipt Date: 20151110
  Transmission Date: 20160304
  Serious: No
  Sender: FDA-Public Use
  Company Number: US-ELI_LILLY_AND_COMPANY-US201205002061

PATIENT
  Age: 65 Year
  Sex: Female

DRUGS (1)
  1. FORTEO [Suspect]
     Active Substance: TERIPARATIDE
     Indication: OSTEOPOROSIS
     Dosage: 20 UG, QD
     Dates: start: 20120502

REACTIONS (8)
  - Erythema [Unknown]
  - Feeling cold [Unknown]
  - Nausea [Not Recovered/Not Resolved]
  - Hiccups [Unknown]
  - Nervousness [Unknown]
  - Injection site erythema [Unknown]
  - Injection site haemorrhage [Unknown]
  - Irritability [Unknown]

NARRATIVE: CASE EVENT DATE: 20120502
